FAERS Safety Report 26047094 (Version 3)
Quarter: 2025Q4

REPORT INFORMATION
  Report Type: Spontaneous
  Country: JP (occurrence: JP)
  Receive Date: 20251114
  Receipt Date: 20251218
  Transmission Date: 20260119
  Serious: No
  Sender: GALDERMA
  Company Number: JP-GALDERMA-JP2025023486

PATIENT

DRUGS (4)
  1. NEMOLIZUMAB [Suspect]
     Active Substance: NEMOLIZUMAB
     Indication: Neurodermatitis
     Dosage: UNK
     Route: 058
     Dates: start: 20250722, end: 20250722
  2. NEMOLIZUMAB [Suspect]
     Active Substance: NEMOLIZUMAB
     Dosage: 30 MILLIGRAM
     Route: 058
     Dates: start: 2025, end: 2025
  3. CLOBETASOL [Concomitant]
     Active Substance: CLOBETASOL
     Indication: Product used for unknown indication
     Route: 061
  4. Rinderon [Concomitant]
     Indication: Product used for unknown indication
     Route: 061

REACTIONS (1)
  - Erythema multiforme [Recovering/Resolving]

NARRATIVE: CASE EVENT DATE: 20251104
